FAERS Safety Report 8065829-X (Version None)
Quarter: 2012Q1

REPORT INFORMATION
  Report Type: 
  Country: None (occurrence: None)
  Receive Date: 20120124
  Receipt Date: 20120118
  Transmission Date: 20120608
  Serious: Yes (Hospitalization)
  Sender: FDA-Public Use
  Company Number: US-CELGENEUS-163-21880-12011925

PATIENT
  Sex: Female

DRUGS (9)
  1. FERROUS SULFATE TAB [Concomitant]
     Route: 065
  2. PREVACID [Concomitant]
     Route: 065
  3. METFORMIN HCL [Concomitant]
     Route: 065
  4. HYDROCODONE BITARTRATE AND ACETAMINOPHEN [Concomitant]
     Route: 065
  5. GABAPENTIN [Concomitant]
     Route: 065
  6. REVLIMID [Suspect]
     Dosage: 25 MILLIGRAM
     Route: 048
     Dates: start: 20110817
  7. ONDANSETRON HYDROCHLORIDE [Concomitant]
     Route: 065
  8. LIPITOR [Concomitant]
     Route: 065
  9. LASIX [Concomitant]
     Route: 065

REACTIONS (1)
  - BLOOD GLUCOSE INCREASED [None]
